FAERS Safety Report 10023714 (Version 1)
Quarter: 2014Q1

REPORT INFORMATION
  Report Type: Report from Study
  Country: KR (occurrence: None)
  Receive Date: 20140110
  Receipt Date: 20140110
  Transmission Date: 20141002
  Serious: Yes (Other)
  Sender: FDA-Public Use
  Company Number: 2013SA030215

PATIENT
  Age: 35 Year
  Sex: Female
  Weight: 68 kg

DRUGS (3)
  1. INSULIN GLARGINE [Suspect]
     Indication: DIABETES MELLITUS
     Route: 058
     Dates: start: 20130207, end: 20130312
  2. SOLOSTAR [Concomitant]
  3. HUMALOG [Concomitant]

REACTIONS (3)
  - No therapeutic response [None]
  - Ectopic pregnancy [None]
  - Exposure during pregnancy [None]
